FAERS Safety Report 5780843-2 (Version None)
Quarter: 2008Q2

REPORT INFORMATION
  Report Type: 
  Country: None (occurrence: None)
  Receive Date: 20080620
  Receipt Date: 20080609
  Transmission Date: 20081010
  Serious: Yes (Other)
  Sender: FDA-Public Use
  Company Number: US-PFIZER INC-2008048369

PATIENT
  Sex: Female

DRUGS (1)
  1. BEXTRA [Suspect]
     Indication: FIBROMYALGIA

REACTIONS (4)
  - DEPRESSION [None]
  - DERMATITIS [None]
  - SCAR [None]
  - SKIN LESION [None]
